FAERS Safety Report 9812586 (Version 2)
Quarter: 2015Q4

REPORT INFORMATION
  Report Type: Report from Study
  Country: US (occurrence: US)
  Receive Date: 20140113
  Receipt Date: 20151207
  Transmission Date: 20160305
  Serious: Yes (Other)
  Sender: FDA-Public Use
  Company Number: US-ROCHE-1313330

PATIENT
  Age: 63 Year
  Sex: Male
  Weight: 66.4 kg

DRUGS (15)
  1. TAXOTERE [Concomitant]
     Active Substance: DOCETAXEL
     Indication: LUNG NEOPLASM MALIGNANT
     Route: 065
     Dates: start: 20111108
  2. ALBUTEROL. [Concomitant]
     Active Substance: ALBUTEROL
     Route: 055
  3. NAVELBINE [Concomitant]
     Active Substance: VINORELBINE TARTRATE
  4. DURAGESIC [Concomitant]
     Active Substance: FENTANYL
     Dosage: EVERY THREE DAYS
     Route: 062
  5. AVASTIN [Suspect]
     Active Substance: BEVACIZUMAB
     Indication: LUNG NEOPLASM MALIGNANT
     Dosage: FIRST CYCLE FOR 3 MONTHS
     Route: 065
     Dates: start: 2007
  6. FENTANYL. [Concomitant]
     Active Substance: FENTANYL
     Dosage: EVERY THREE DAYS
     Route: 062
  7. LORAZEPAM. [Concomitant]
     Active Substance: LORAZEPAM
     Dosage: EVERY 4 HOURS
     Route: 048
  8. NAPROXEN. [Suspect]
     Active Substance: NAPROXEN
     Indication: PAIN
     Route: 065
  9. TRAMADOL. [Concomitant]
     Active Substance: TRAMADOL
  10. GEMCITABINE [Concomitant]
     Active Substance: GEMCITABINE\GEMCITABINE HYDROCHLORIDE
     Indication: LUNG NEOPLASM MALIGNANT
     Route: 065
     Dates: start: 2007
  11. COMPAZINE [Concomitant]
     Active Substance: PROCHLORPERAZINE MALEATE
  12. CLARITHROMYCIN. [Concomitant]
     Active Substance: CLARITHROMYCIN
     Route: 048
  13. AVASTIN [Suspect]
     Active Substance: BEVACIZUMAB
     Indication: LUNG NEOPLASM MALIGNANT
     Route: 042
     Dates: start: 20120524
  14. CARBOPLATIN. [Suspect]
     Active Substance: CARBOPLATIN
     Indication: PAIN
     Dosage: FOR 3 MONTH
     Route: 065
     Dates: start: 2007
  15. LEVAQUIN [Concomitant]
     Active Substance: LEVOFLOXACIN

REACTIONS (19)
  - Appetite disorder [Unknown]
  - Disease progression [Unknown]
  - Back pain [Unknown]
  - Dyspepsia [Unknown]
  - Dizziness [Unknown]
  - Constipation [Unknown]
  - Nausea [Unknown]
  - Abdominal pain [Unknown]
  - Diarrhoea [Unknown]
  - Breath sounds abnormal [Unknown]
  - Anxiety [Unknown]
  - Pneumonectomy [Unknown]
  - Productive cough [Unknown]
  - Depression [Unknown]
  - Tachycardia [Unknown]
  - Fatigue [Unknown]
  - Vomiting [Unknown]
  - Musculoskeletal chest pain [Unknown]
  - Dry mouth [Unknown]

NARRATIVE: CASE EVENT DATE: 201001
